FAERS Safety Report 8114729-5 (Version None)
Quarter: 2012Q1

REPORT INFORMATION
  Report Type: 
  Country: None (occurrence: None)
  Receive Date: 20120202
  Receipt Date: 20120202
  Transmission Date: 20120608
  Serious: Yes (Life-Threatening, Hospitalization, Other)
  Sender: FDA-Public Use
  Company Number: None

PATIENT
  Sex: Female

DRUGS (1)
  1. JANUVIA [Suspect]
     Indication: TYPE 2 DIABETES MELLITUS
     Dosage: JANUVIA 100MG QD PO
     Route: 048
     Dates: start: 20101118, end: 20111227

REACTIONS (2)
  - NEUROENDOCRINE CARCINOMA METASTATIC [None]
  - METASTASES TO LIVER [None]
